FAERS Safety Report 20468839 (Version 1)
Quarter: 2022Q1

REPORT INFORMATION
  Report Type: Spontaneous
  Country: CA (occurrence: CA)
  Receive Date: 20220214
  Receipt Date: 20220214
  Transmission Date: 20220423
  Serious: Yes (Other)
  Sender: FDA-Public Use
  Company Number: CA-GLAXOSMITHKLINE-CA2022AMR022009

PATIENT
  Age: 66 Year
  Sex: Female

DRUGS (4)
  1. ARNUITY ELLIPTA [Suspect]
     Active Substance: FLUTICASONE FUROATE
     Indication: Asthma
     Dosage: 100 UG, QD, 1 EVERY 1 DAY
     Route: 055
  2. CALCIUM [Concomitant]
     Active Substance: CALCIUM
     Indication: Product used for unknown indication
     Dosage: UNK
  3. VITAMINS [Concomitant]
     Active Substance: VITAMINS
     Indication: Product used for unknown indication
     Dosage: UNK
  4. VITAMIN D [Concomitant]
     Active Substance: VITAMIN D NOS
     Indication: Product used for unknown indication
     Dosage: UNK

REACTIONS (8)
  - Arthralgia [Recovering/Resolving]
  - Back pain [Recovering/Resolving]
  - Chills [Recovering/Resolving]
  - Erythema [Recovering/Resolving]
  - Fatigue [Recovering/Resolving]
  - Lip swelling [Recovering/Resolving]
  - Swelling face [Recovering/Resolving]
  - Urticaria [Recovering/Resolving]
